FAERS Safety Report 6771514-4 (Version None)
Quarter: 2010Q2

REPORT INFORMATION
  Report Type: 
  Country: None (occurrence: None)
  Receive Date: 20100616
  Receipt Date: 20100601
  Transmission Date: 20101027
  Serious: Yes (Death, Life-Threatening, Hospitalization)
  Sender: FDA-Public Use
  Company Number: US-ROCHE-707856

PATIENT
  Sex: Female

DRUGS (3)
  1. BEVACIZUMAB [Suspect]
     Indication: OVARIAN CANCER
     Dosage: CYCLE=21 DAYS,DOSE:15 MG/KG OVER 30-90 MIN ON DAY 1 OF CYCLES 2-6, START DATE OF AE COURSE: 2APR2010
     Route: 042
     Dates: start: 20100108
  2. PACLITAXEL [Suspect]
     Indication: OVARIAN CANCER
     Dosage: CYCLE=21 DAYS, START DATE OF AE COURSE: 2 APRIL 2010, DOSE: 175 MG/M2 OVER 3 HOURS ON DAY 1
     Route: 042
     Dates: start: 20100108
  3. CARBOPLATIN [Suspect]
     Indication: OVARIAN CANCER
     Dosage: CYCLE=21 DAYS, START DATE OF AE COURSE: 2 APRIL 2010, DOSE: 6 AUC IP INFUSION ON DAY 1,FORM:INFUSION
     Route: 042
     Dates: start: 20100108

REACTIONS (2)
  - GASTROINTESTINAL FISTULA [None]
  - INFECTION [None]
